FAERS Safety Report 9704232 (Version 1)
Quarter: 2013Q4

REPORT INFORMATION
  Report Type: Spontaneous
  Country: ES (occurrence: ES)
  Receive Date: 20131122
  Receipt Date: 20131122
  Transmission Date: 20140711
  Serious: Yes (Other)
  Sender: FDA-Public Use
  Company Number: ES-PFIZER INC-2013329459

PATIENT
  Age: 76 Year
  Sex: Female

DRUGS (12)
  1. LINEZOLID [Suspect]
     Indication: PNEUMONIA
     Dosage: 1200 MG/DAY
     Route: 042
     Dates: start: 20130201, end: 20130204
  2. TAZOCEL [Suspect]
     Indication: PNEUMONIA
     Dosage: 16 G/DAY
     Route: 042
     Dates: start: 20130201, end: 20130204
  3. FLECAINIDE [Concomitant]
     Indication: ATRIAL FLUTTER
     Dosage: 100 MG/DAY
     Route: 048
     Dates: start: 20130124
  4. CODEINE [Concomitant]
     Indication: COUGH
     Dosage: 90 MG/DAY
     Route: 048
     Dates: start: 20130202
  5. INSULIN GLARGINE [Concomitant]
     Indication: TYPE 2 DIABETES MELLITUS
     Dosage: 15 IU, 1X/DAY
     Route: 058
     Dates: start: 20130124
  6. INSULIN GLULISINE [Concomitant]
     Indication: TYPE 2 DIABETES MELLITUS
     Dosage: 18 UNK, 3X/DAY
     Route: 058
     Dates: start: 20130124
  7. FUROSEMIDE [Concomitant]
     Indication: CARDIAC FAILURE CONGESTIVE
     Dosage: 80 MG/DAY
     Route: 048
     Dates: start: 20130124
  8. SIMVASTATIN [Concomitant]
     Indication: DYSLIPIDAEMIA
     Dosage: 20 MG/DAY
     Route: 048
     Dates: start: 2012
  9. PANTOPRAZOL [Concomitant]
     Indication: PROPHYLAXIS AGAINST GASTROINTESTINAL ULCER
     Dosage: 40 MG/DAY
     Route: 048
     Dates: start: 20130124
  10. LORAZEPAM [Concomitant]
     Indication: INSOMNIA
     Dosage: 1 MG/DAY
     Route: 048
     Dates: start: 20130125
  11. CLEXANE [Concomitant]
     Indication: ATRIAL FLUTTER
     Dosage: 80 MG, 2X/DAY
     Route: 058
     Dates: start: 20130130
  12. SPIRIVA [Concomitant]
     Indication: CHRONIC OBSTRUCTIVE PULMONARY DISEASE
     Dosage: UNK
     Route: 055
     Dates: start: 2011

REACTIONS (1)
  - Hepatitis [Recovered/Resolved]
